FAERS Safety Report 6665799-2 (Version None)
Quarter: 2010Q2

REPORT INFORMATION
  Report Type: 
  Country: None (occurrence: None)
  Receive Date: 20100330
  Receipt Date: 20100319
  Transmission Date: 20101027
  Serious: Yes (Death, Hospitalization)
  Sender: FDA-Public Use
  Company Number: 430009M10USA

PATIENT
  Age: 64 Year
  Sex: Male
  Weight: 69 kg

DRUGS (23)
  1. NOVANTRONE [Suspect]
     Indication: PROSTATE CANCER METASTATIC
     Dosage: 22 MG, 1 IN 21 DAYS, INTRAVENOUS (NOT OTHERWISE SPECIFIED)
     Route: 042
     Dates: start: 20090810, end: 20090831
  2. IMC-A12 [ANTI-IGF-IR MAB] (INVESTIGATIONAL DRUG) [Suspect]
     Indication: PROSTATE CANCER METASTATIC
     Dosage: 456 MG, 1 IN 1 WEEKS, INTRAVENOUS (NOT OTHERWISE SPECIFIED)
     Route: 042
     Dates: start: 20090810, end: 20090908
  3. PREDNISONE TAB [Suspect]
     Indication: PROSTATE CANCER METASTATIC
     Dosage: 10 MG, 1 IN 1 DAYS, ORAL
     Route: 048
     Dates: start: 20080810, end: 20090908
  4. PROMETHAZINE [Concomitant]
  5. REGLAN [Concomitant]
  6. MIRALAX [Concomitant]
  7. BACTRIM [Concomitant]
  8. SENOKOT (SENNA ALEXANDRINA) [Concomitant]
  9. MORPHINE [Concomitant]
  10. ARANESP [Concomitant]
  11. CELLCEPT [Concomitant]
  12. AFRIN [Concomitant]
  13. PROVENTIL [Concomitant]
  14. ADVAIR DISKUS 100/50 [Concomitant]
  15. DILAUDID [Concomitant]
  16. MORPHINE SULFATE INJ [Concomitant]
  17. ALPRAZOLAM [Concomitant]
  18. OMEPRAZOLE [Concomitant]
  19. TOVIAZ [Concomitant]
  20. MEGACE [Concomitant]
  21. METFORMIN HCL [Concomitant]
  22. ZOLPIDEM [Concomitant]
  23. MORPHINE SULFATE INJ [Concomitant]

REACTIONS (19)
  - ACTIVATED PARTIAL THROMBOPLASTIN TIME PROLONGED [None]
  - ANXIETY [None]
  - CANCER PAIN [None]
  - COAGULOPATHY [None]
  - CYANOSIS [None]
  - DEHYDRATION [None]
  - DISSEMINATED INTRAVASCULAR COAGULATION [None]
  - DYSPNOEA [None]
  - HAEMATOCRIT DECREASED [None]
  - HAEMOGLOBIN DECREASED [None]
  - HYPOTENSION [None]
  - INTERNATIONAL NORMALISED RATIO INCREASED [None]
  - LIVER FUNCTION TEST ABNORMAL [None]
  - NEUTROPENIA [None]
  - PROTHROMBIN TIME PROLONGED [None]
  - RENAL FAILURE ACUTE [None]
  - SEPSIS [None]
  - THROMBOCYTOPENIA [None]
  - WHITE BLOOD CELL COUNT DECREASED [None]
